FAERS Safety Report 4703886-6 (Version None)
Quarter: 2005Q2

REPORT INFORMATION
  Report Type: 
  Country: None (occurrence: None)
  Receive Date: 20050628
  Receipt Date: 20050614
  Transmission Date: 20051028
  Serious: Yes (Hospitalization)
  Sender: FDA-Public Use
  Company Number: US_0505117287

PATIENT
  Age: 65 Year
  Sex: Female
  Weight: 58 kg

DRUGS (6)
  1. FORTEO [Suspect]
     Indication: OSTEOPOROSIS
     Dosage: 20 UG DAY
     Dates: start: 20050418, end: 20050430
  2. PROZAC [Concomitant]
  3. NEXIUM [Concomitant]
  4. CLONIDINE [Concomitant]
  5. ZYRTEC [Concomitant]
  6. DICYCLOMINE [Concomitant]

REACTIONS (2)
  - ABDOMINAL PAIN [None]
  - ILEUS [None]
